FAERS Safety Report 9601983 (Version 1)
Quarter: 2013Q4

REPORT INFORMATION
  Report Type: Spontaneous
  Country: US (occurrence: None)
  Receive Date: 20131004
  Receipt Date: 20131004
  Transmission Date: 20140711
  Serious: Yes (Hospitalization)
  Sender: FDA-Public Use
  Company Number: None

PATIENT
  Age: 57 Year
  Sex: Male
  Weight: 56 kg

DRUGS (11)
  1. DAPSONE [Suspect]
     Indication: HIDRADENITIS
     Dosage: 25 MG. QD, ORAL?UNK PRIOR TO ADMISSION
     Route: 048
  2. ASCORBIC ACID [Concomitant]
  3. BRIMONIDINE [Concomitant]
  4. DORZOLAMIDE/ TIMOLOL [Concomitant]
  5. LATANOPROST [Concomitant]
  6. LEVOTHYROXINE [Concomitant]
  7. MAGNESIUM OXIDE [Concomitant]
  8. MORPHINE SULFATE [Concomitant]
  9. KC1 20 MEQ [Concomitant]
  10. TRAMADOL [Concomitant]
  11. MULTIVITAMIN [Concomitant]

REACTIONS (4)
  - Hypochromic anaemia [None]
  - Superinfection [None]
  - Rash pustular [None]
  - Wound complication [None]
